FAERS Safety Report 7416845-X (Version None)
Quarter: 2011Q2

REPORT INFORMATION
  Report Type: 
  Country: None (occurrence: None)
  Receive Date: 20110407
  Receipt Date: 20110324
  Transmission Date: 20111010
  Serious: Yes (Other)
  Sender: FDA-Public Use
  Company Number: 2011MA003096

PATIENT
  Age: 77 Year
  Sex: Female

DRUGS (8)
  1. PREDNISOLONE [Concomitant]
  2. ASPIRIN [Concomitant]
  3. BENDROFLUMETHIAZIDE [Concomitant]
  4. FEVERALL [Suspect]
  5. DOXAZOSIN MESYLATE [Concomitant]
  6. SIMVASTATIN [Concomitant]
  7. METFORMIN HYDROCHLORIDE [Concomitant]
  8. ATENOLOL [Concomitant]

REACTIONS (2)
  - PHARYNGEAL OEDEMA [None]
  - SWOLLEN TONGUE [None]
